FAERS Safety Report 7460775-4 (Version None)
Quarter: 2011Q2

REPORT INFORMATION
  Report Type: 
  Country: None (occurrence: None)
  Receive Date: 20110505
  Receipt Date: 20110428
  Transmission Date: 20111010
  Serious: Yes (Death, Other)
  Sender: FDA-Public Use
  Company Number: PHFR2011GB02844

PATIENT
  Age: 30 Year
  Sex: Male
  Weight: 120 kg

DRUGS (5)
  1. FOLIC ACID [Concomitant]
     Dosage: 5 MG, QD
     Route: 048
  2. THIAMINE [Concomitant]
     Dosage: 100 MG, TID
     Route: 048
  3. CLOZARIL [Suspect]
     Indication: SCHIZOPHRENIA
     Dosage: 450 MG, QD
     Route: 048
     Dates: start: 20031112
  4. PROPRANOLOL [Concomitant]
     Dosage: 40 MG, QD
  5. VITAMIN B COMPLEX CAP [Concomitant]
     Dosage: 1 DF, QD

REACTIONS (11)
  - SYNCOPE [None]
  - ANTIPSYCHOTIC DRUG LEVEL INCREASED [None]
  - BEDRIDDEN [None]
  - HAEMATEMESIS [None]
  - VOMITING [None]
  - NECK PAIN [None]
  - HEPATIC FAILURE [None]
  - MALAISE [None]
  - ALCOHOLIC LIVER DISEASE [None]
  - ABDOMINAL PAIN UPPER [None]
  - CYANOSIS [None]
